FAERS Safety Report 24766801 (Version 1)
Quarter: 2024Q4

REPORT INFORMATION
  Report Type: Report from Study
  Country: US (occurrence: US)
  Receive Date: 20241223
  Receipt Date: 20241223
  Transmission Date: 20250115
  Serious: Yes (Hospitalization, Other)
  Sender: AURINIA PHARMACEUTICALS
  Company Number: US-AURINIA PHARMACEUTICALS INC.-AUR-007463

PATIENT
  Age: 25 Year
  Sex: Female
  Weight: 120.1 kg

DRUGS (1)
  1. LUPKYNIS [Suspect]
     Active Substance: VOCLOSPORIN
     Indication: Systemic lupus erythematosus
     Dosage: 15.8 MILLIGRAM, BID
     Route: 048
     Dates: start: 20240317, end: 20241120

REACTIONS (22)
  - Abortion threatened [Unknown]
  - Evans syndrome [Unknown]
  - Acute kidney injury [Unknown]
  - Systemic lupus erythematosus [Not Recovered/Not Resolved]
  - Gait disturbance [Unknown]
  - Microangiopathic haemolytic anaemia [Unknown]
  - Serositis [Unknown]
  - Arthritis [Unknown]
  - Arthralgia [Unknown]
  - Nausea [Unknown]
  - Chromaturia [Unknown]
  - Urine abnormality [Unknown]
  - Vomiting [Unknown]
  - Asthenia [Unknown]
  - Proteinuria [Unknown]
  - Red blood cell sedimentation rate increased [Unknown]
  - Diarrhoea [Not Recovered/Not Resolved]
  - Decreased appetite [Unknown]
  - Hypertension [Unknown]
  - Fatigue [Unknown]
  - Exposure during pregnancy [Unknown]
  - Treatment noncompliance [Unknown]

NARRATIVE: CASE EVENT DATE: 20240101
